FAERS Safety Report 10557385 (Version 1)
Quarter: 2014Q4

REPORT INFORMATION
  Report Type: Spontaneous
  Country: US (occurrence: None)
  Receive Date: 20141030
  Receipt Date: 20141030
  Transmission Date: 20150529
  Serious: Yes (Other)
  Sender: FDA-Public Use
  Company Number: None

PATIENT
  Age: 54 Year
  Sex: Male
  Weight: 102.06 kg

DRUGS (1)
  1. CIPROFLOXIN [Suspect]
     Active Substance: CIPROFLOXACIN
     Indication: PROSTATITIS
     Dosage: 1 PILL 2X DAY FOR 10 DAYS, TWICE DAILY, TAKEN BY MOUTH
     Route: 048
     Dates: start: 20141023, end: 20141027

REACTIONS (4)
  - Peripheral swelling [None]
  - Pain in extremity [None]
  - Joint swelling [None]
  - Oedema peripheral [None]

NARRATIVE: CASE EVENT DATE: 20141027
